FAERS Safety Report 7173425-1 (Version None)
Quarter: 2010Q4

REPORT INFORMATION
  Report Type: 
  Country: None (occurrence: None)
  Receive Date: 20101202
  Receipt Date: 20101117
  Transmission Date: 20110411
  Serious: Yes (Other)
  Sender: FDA-Public Use
  Company Number: 2010BI038085

PATIENT
  Age: 61 Year
  Sex: Male

DRUGS (15)
  1. ZEVALIN [Suspect]
     Indication: FOLLICLE CENTRE LYMPHOMA, FOLLICULAR GRADE I, II, III
     Dosage: 850 MBQ; 1X; IV
     Route: 042
     Dates: start: 20091117, end: 20091125
  2. ZEVALIN [Suspect]
  3. RITUXIMAB [Concomitant]
  4. POLARAMINE [Concomitant]
  5. SOLU-CORTEF [Concomitant]
  6. CYCLOPHOSPHAMIDE [Concomitant]
  7. DOXORUBICIN [Concomitant]
  8. VINCRISTINE [Concomitant]
  9. PREDNISOLONE [Concomitant]
  10. ETOPOSIDE [Concomitant]
  11. FLUDARABINE [Concomitant]
  12. MITOXANTRONE [Concomitant]
  13. DEXAMETHASONE [Concomitant]
  14. INTERFERON [Concomitant]
  15. RITUXIMAB [Concomitant]

REACTIONS (1)
  - PNEUMATOSIS INTESTINALIS [None]
